FAERS Safety Report 11949730 (Version 1)
Quarter: 2016Q1

REPORT INFORMATION
  Report Type: Spontaneous
  Country: US (occurrence: None)
  Receive Date: 20160122
  Receipt Date: 20160122
  Transmission Date: 20160526
  Serious: Yes (Other)
  Sender: FDA-Public Use
  Company Number: None

PATIENT
  Age: 78 Year
  Sex: Male

DRUGS (1)
  1. ZYTIGA [Suspect]
     Active Substance: ABIRATERONE ACETATE
     Indication: PROSTATE CANCER
     Route: 048
     Dates: start: 201406, end: 20151215

REACTIONS (9)
  - Vomiting [None]
  - Asthenia [None]
  - Jaundice [None]
  - Chromaturia [None]
  - Blood alkaline phosphatase increased [None]
  - Dizziness [None]
  - Abdominal pain upper [None]
  - Faeces pale [None]
  - Aspartate aminotransferase increased [None]

NARRATIVE: CASE EVENT DATE: 20151215
